FAERS Safety Report 25473600 (Version 1)
Quarter: 2025Q2

REPORT INFORMATION
  Report Type: Spontaneous
  Country: JP (occurrence: JP)
  Receive Date: 20250624
  Receipt Date: 20250624
  Transmission Date: 20250717
  Serious: Yes (Other)
  Sender: SLATE RUN
  Company Number: JP-SLATERUN-2025SRLIT00081

PATIENT
  Age: 48 Year
  Sex: Male

DRUGS (1)
  1. MYCOPHENOLIC ACID [Suspect]
     Active Substance: MYCOPHENOLIC ACID
     Indication: Graft versus host disease in liver
     Route: 065

REACTIONS (4)
  - Myelosuppression [Unknown]
  - Drug-induced liver injury [Unknown]
  - Pneumonia bacterial [Unknown]
  - COVID-19 [Unknown]
